FAERS Safety Report 4441998-5 (Version None)
Quarter: 2004Q3

REPORT INFORMATION
  Report Type: 
  Country: None (occurrence: None)
  Receive Date: 20040907
  Receipt Date: 20040716
  Transmission Date: 20050211
  Serious: Yes (Death, Other)
  Sender: FDA-Public Use
  Company Number: PHBS2004BE11302

PATIENT
  Age: 20 Year
  Sex: Male
  Weight: 50 kg

DRUGS (9)
  1. SANDOSTATIN [Suspect]
     Indication: DIARRHOEA
     Dosage: 0.4 MG/D
     Route: 042
     Dates: start: 20040706, end: 20040723
  2. SANDIMMUNE [Concomitant]
  3. SOLU-MEDROL [Concomitant]
  4. ZANTAC [Concomitant]
  5. BUSCOPAN [Concomitant]
     Dates: start: 20040528, end: 20040730
  6. ACYCLOVIR [Concomitant]
     Dates: start: 20040528, end: 20040730
  7. LITICAN [Concomitant]
     Dates: start: 20040528, end: 20040730
  8. EUSAPRIM [Concomitant]
     Dates: start: 20040528, end: 20040730
  9. MORPHINE [Suspect]
     Dates: start: 20040528, end: 20040730

REACTIONS (6)
  - BLOOD BILIRUBIN INCREASED [None]
  - C-REACTIVE PROTEIN INCREASED [None]
  - CHOLESTASIS [None]
  - DEATH [None]
  - PLATELET COUNT DECREASED [None]
  - WHITE BLOOD CELL COUNT DECREASED [None]
